FAERS Safety Report 10009483 (Version 1)
Quarter: 2014Q1

REPORT INFORMATION
  Report Type: Spontaneous
  Country: US (occurrence: US)
  Receive Date: 20140312
  Receipt Date: 20140312
  Transmission Date: 20141002
  Serious: Yes (Other)
  Sender: FDA-Public Use
  Company Number: US-INCYTE CORPORATION-2012IN001823

PATIENT
  Sex: Female

DRUGS (10)
  1. JAKAFI [Suspect]
     Indication: MYELOFIBROSIS
     Dosage: 10 MG, BID
     Route: 048
  2. ALLOPURINOL [Concomitant]
  3. PROPANOLOL [Concomitant]
  4. LOSARTAN [Concomitant]
  5. LEVOTHYROXINE [Concomitant]
  6. LEXAPRO [Concomitant]
  7. MECLIZINE [Concomitant]
  8. CIPRO [Concomitant]
  9. ASPIRIN [Concomitant]
     Dosage: 325 MG, UNK
  10. MULTIVITAMIN [Concomitant]

REACTIONS (2)
  - Haemoglobin decreased [Not Recovered/Not Resolved]
  - Urinary tract infection [Not Recovered/Not Resolved]
